FAERS Safety Report 6164259-5 (Version None)
Quarter: 2009Q2

REPORT INFORMATION
  Report Type: 
  Country: None (occurrence: None)
  Receive Date: 20090422
  Receipt Date: 20090413
  Transmission Date: 20091009
  Serious: Yes (Hospitalization)
  Sender: FDA-Public Use
  Company Number: US-BAXTER-2009BH004168

PATIENT
  Age: 48 Year
  Sex: Female

DRUGS (5)
  1. ENDOXAN BAXTER [Suspect]
     Indication: INFLAMMATORY CARCINOMA OF THE BREAST
     Route: 065
  2. IXABEPILONE [Suspect]
     Indication: INFLAMMATORY CARCINOMA OF THE BREAST
     Route: 042
     Dates: start: 20090220
  3. ADRIAMYCIN RDF [Suspect]
     Indication: INFLAMMATORY CARCINOMA OF THE BREAST
     Route: 065
  4. TAXOTERE [Suspect]
     Indication: INFLAMMATORY CARCINOMA OF THE BREAST
     Route: 065
  5. XELODA [Suspect]
     Indication: INFLAMMATORY CARCINOMA OF THE BREAST
     Route: 065

REACTIONS (2)
  - HYPOTENSION [None]
  - SEPSIS [None]
